FAERS Safety Report 25763090 (Version 1)
Quarter: 2025Q3

REPORT INFORMATION
  Report Type: Spontaneous
  Country: CN (occurrence: CN)
  Receive Date: 20250904
  Receipt Date: 20250904
  Transmission Date: 20251021
  Serious: Yes (Other)
  Sender: BEIGENE
  Company Number: CN-GLANDPHARMA-CN-2025GLNLIT01131

PATIENT
  Age: 55 Year

DRUGS (10)
  1. TISLELIZUMAB [Suspect]
     Active Substance: TISLELIZUMAB
     Indication: Anaplastic thyroid cancer
     Dosage: 200 MILLIGRAM, Q3WK
  2. TISLELIZUMAB [Suspect]
     Active Substance: TISLELIZUMAB
     Dosage: 200 MILLIGRAM, Q3WK
  3. TISLELIZUMAB [Suspect]
     Active Substance: TISLELIZUMAB
     Dosage: 200 MILLIGRAM, Q3WK
  4. TISLELIZUMAB [Suspect]
     Active Substance: TISLELIZUMAB
     Dosage: 200 MILLIGRAM, Q3WK
  5. CATEQUENTINIB [Suspect]
     Active Substance: CATEQUENTINIB
     Indication: Anaplastic thyroid cancer
     Route: 048
  6. CATEQUENTINIB [Suspect]
     Active Substance: CATEQUENTINIB
  7. PACLITAXEL [Suspect]
     Active Substance: PACLITAXEL
     Indication: Anaplastic thyroid cancer
     Route: 041
  8. PACLITAXEL [Suspect]
     Active Substance: PACLITAXEL
  9. LOBAPLATIN [Suspect]
     Active Substance: LOBAPLATIN
     Indication: Anaplastic thyroid cancer
  10. LOBAPLATIN [Suspect]
     Active Substance: LOBAPLATIN

REACTIONS (3)
  - Myelosuppression [Unknown]
  - Thrombocytopenia [Unknown]
  - Off label use [Unknown]
